FAERS Safety Report 8781400 (Version 1)
Quarter: 2012Q4

REPORT INFORMATION
  Report Type: 
  Country: FR (occurrence: FR)
  Receive Date: 20120913
  Receipt Date: 20120913
  Transmission Date: 20130627
  Serious: Yes (Hospitalization)
  Sender: FDA-Public Use
  Company Number: PHHY2012FR078217

PATIENT
  Age: 57 Year
  Sex: Female

DRUGS (4)
  1. TAREG [Suspect]
     Dosage: 80 mg,
     Route: 048
  2. CORTANCYL [Suspect]
     Dosage: 6 mg, daily
     Route: 048
  3. CORTANCYL [Suspect]
     Dosage: UNK UKN, UNK
  4. SECTRAL [Suspect]
     Indication: HYPERTENSION
     Dosage: 200 mg,

REACTIONS (29)
  - Cerebral vasoconstriction [Recovered/Resolved with Sequelae]
  - Cerebral haematoma [Recovering/Resolving]
  - Subdural haematoma [Recovering/Resolving]
  - Cerebral haemorrhage [Unknown]
  - Cerebral vasoconstriction [Recovering/Resolving]
  - Epilepsy [Unknown]
  - Hemiparesis [Recovered/Resolved]
  - Hemianopia homonymous [Not Recovered/Not Resolved]
  - Convulsion [Recovering/Resolving]
  - Simple partial seizures [Unknown]
  - Pyramidal tract syndrome [Recovering/Resolving]
  - Hemisensory neglect [Recovering/Resolving]
  - Central nervous system lesion [Recovering/Resolving]
  - Intracranial pressure increased [Unknown]
  - Brain midline shift [Unknown]
  - Anaesthesia [Recovering/Resolving]
  - Eye movement disorder [Recovering/Resolving]
  - Atrophy [Recovering/Resolving]
  - Clonus [Unknown]
  - Inflammation [Recovering/Resolving]
  - Antinuclear antibody positive [Recovering/Resolving]
  - C-reactive protein increased [Recovering/Resolving]
  - Salivary gland mass [Recovering/Resolving]
  - Disturbance in attention [Recovering/Resolving]
  - Hypoaesthesia [Recovering/Resolving]
  - Dizziness [Recovering/Resolving]
  - Headache [Recovering/Resolving]
  - Vomiting [Recovering/Resolving]
  - Hypertension [Recovering/Resolving]
